FAERS Safety Report 18088692 (Version 2)
Quarter: 2020Q3

REPORT INFORMATION
  Report Type: Spontaneous
  Country: US (occurrence: US)
  Receive Date: 20200729
  Receipt Date: 20200731
  Transmission Date: 20201103
  Serious: No
  Sender: FDA-Public Use
  Company Number: US-PFIZER INC-2020288198

PATIENT
  Age: 67 Year
  Sex: Female

DRUGS (59)
  1. TAXOTERE [Suspect]
     Active Substance: DOCETAXEL
     Dosage: UNK (145)
     Dates: start: 20120413
  2. FLUOROURACIL. [Concomitant]
     Active Substance: FLUOROURACIL
     Indication: CHEMOTHERAPY
     Dosage: UNK (SIX TIMES)
  3. HERCEPTIN [Concomitant]
     Active Substance: TRASTUZUMAB
     Dosage: UNK
     Dates: start: 2012
  4. HERCEPTIN [Concomitant]
     Active Substance: TRASTUZUMAB
     Dosage: UNK (550)
     Dates: start: 20120323
  5. HERCEPTIN [Concomitant]
     Active Substance: TRASTUZUMAB
     Dosage: UNK (550)
     Dates: start: 20120507
  6. HERCEPTIN [Concomitant]
     Active Substance: TRASTUZUMAB
     Dosage: 550 MG
     Dates: start: 20120716
  7. ARIMIDEX [Concomitant]
     Active Substance: ANASTROZOLE
     Dosage: UNK
     Dates: start: 20121008
  8. CARBOPLATIN. [Concomitant]
     Active Substance: CARBOPLATIN
     Dosage: UNK (520)
     Dates: start: 20120302
  9. ASPIRIN. [Concomitant]
     Active Substance: ASPIRIN
     Dosage: 81 MG, DAILY (1 IN PM)
     Route: 048
  10. ADVAIR HFA [Concomitant]
     Active Substance: FLUTICASONE PROPIONATE\SALMETEROL XINAFOATE
     Dosage: UNK, DAILY
  11. METFORMIN [Concomitant]
     Active Substance: METFORMIN HYDROCHLORIDE
     Dosage: UNK, DAILY
  12. MOBIC [Concomitant]
     Active Substance: MELOXICAM
     Indication: ARTHRITIS
     Dosage: 7.5 MG
  13. NEURONTIN [Concomitant]
     Active Substance: GABAPENTIN
     Indication: DIABETES MELLITUS
  14. VITAMIN C [Concomitant]
     Active Substance: ASCORBIC ACID
     Dosage: 500 MG
  15. HERCEPTIN [Concomitant]
     Active Substance: TRASTUZUMAB
     Indication: CHEMOTHERAPY
     Dosage: UNK, CYCLIC (06 CYCLES, EVERY THREE WEEKS)
  16. HERCEPTIN [Concomitant]
     Active Substance: TRASTUZUMAB
     Dosage: UNK (550)
     Dates: start: 20120302
  17. HERCEPTIN [Concomitant]
     Active Substance: TRASTUZUMAB
     Dosage: 485 MG
     Dates: start: 20121029
  18. HERCEPTIN [Concomitant]
     Active Substance: TRASTUZUMAB
     Dosage: 485 MG
     Dates: start: 20121210
  19. ARIMIDEX [Concomitant]
     Active Substance: ANASTROZOLE
     Dosage: UNK
     Dates: start: 20121119
  20. ARIMIDEX [Concomitant]
     Active Substance: ANASTROZOLE
     Dosage: UNK
     Dates: start: 20121210
  21. LIPITOR [Concomitant]
     Active Substance: ATORVASTATIN CALCIUM
     Indication: BLOOD CHOLESTEROL ABNORMAL
     Dosage: 20 MG (1 IN PM)
  22. HERCEPTIN [Concomitant]
     Active Substance: TRASTUZUMAB
     Dosage: UNK (550)
     Dates: start: 20120604
  23. CARBOPLATIN. [Concomitant]
     Active Substance: CARBOPLATIN
     Dosage: UNK (520)
     Dates: start: 20120323
  24. EFFEXOR [Concomitant]
     Active Substance: VENLAFAXINE HYDROCHLORIDE
     Indication: DEPRESSION
     Dosage: UNK, DAILY
  25. TAXOTERE [Suspect]
     Active Substance: DOCETAXEL
     Dosage: UNK (145)
     Dates: start: 20120302
  26. CYCLOPHOSPHAMIDE. [Concomitant]
     Active Substance: CYCLOPHOSPHAMIDE
     Indication: CHEMOTHERAPY
     Dosage: UNK (SIX TIMES)
  27. HERCEPTIN [Concomitant]
     Active Substance: TRASTUZUMAB
     Dosage: UNK (485)
     Dates: start: 20120827
  28. HERCEPTIN [Concomitant]
     Active Substance: TRASTUZUMAB
     Dosage: 485 MG
     Dates: start: 20121008
  29. CARBOPLATIN. [Concomitant]
     Active Substance: CARBOPLATIN
     Indication: CHEMOTHERAPY
     Dosage: UNK (520)
     Dates: start: 20120120
  30. DOCETAXEL. [Suspect]
     Active Substance: DOCETAXEL
     Indication: BREAST CANCER STAGE I
     Dosage: UNK
  31. TAXOTERE [Suspect]
     Active Substance: DOCETAXEL
     Dosage: UNK (145)
     Dates: start: 20120210
  32. CARBOPLATIN. [Concomitant]
     Active Substance: CARBOPLATIN
     Dosage: UNK (520)
     Dates: start: 20120210
  33. CARBOPLATIN. [Concomitant]
     Active Substance: CARBOPLATIN
     Dosage: UNK (520)
     Dates: start: 20120507
  34. EFFEXOR [Concomitant]
     Active Substance: VENLAFAXINE HYDROCHLORIDE
     Dosage: 75 MG (1 IN PM)
  35. HYZAAR [Concomitant]
     Active Substance: HYDROCHLOROTHIAZIDE\LOSARTAN POTASSIUM
     Indication: BLOOD PRESSURE ABNORMAL
     Dosage: 100/12.5 MG (1 IN AM)
  36. NORVASC [Concomitant]
     Active Substance: AMLODIPINE BESYLATE
     Indication: BLOOD PRESSURE ABNORMAL
     Dosage: 2.5 MG (1 IN AM)
  37. DRISDOL [Concomitant]
     Active Substance: ERGOCALCIFEROL
     Dosage: 50000 IU, WEEKLY (1 IN WEEKLY IN AM ON MON)
  38. CALCIUM [Concomitant]
     Active Substance: CALCIUM
     Dosage: 600 MG (1 IN AM + PM)
  39. TAXOTERE [Suspect]
     Active Substance: DOCETAXEL
     Dosage: UNK (145)
     Dates: start: 20120323
  40. HERCEPTIN [Concomitant]
     Active Substance: TRASTUZUMAB
     Dosage: UNK (550)
     Dates: start: 20120210
  41. HERCEPTIN [Concomitant]
     Active Substance: TRASTUZUMAB
     Dosage: UNK (550)
     Dates: start: 20120413
  42. HERCEPTIN [Concomitant]
     Active Substance: TRASTUZUMAB
     Dosage: 550 MG
     Dates: start: 20120625
  43. HERCEPTIN [Concomitant]
     Active Substance: TRASTUZUMAB
     Dosage: UNK (550)
     Dates: start: 20120806
  44. HERCEPTIN [Concomitant]
     Active Substance: TRASTUZUMAB
     Dosage: 485 MG
     Dates: start: 20130102
  45. ARIMIDEX [Concomitant]
     Active Substance: ANASTROZOLE
     Indication: CHEMOTHERAPY
     Dosage: UNK
     Dates: start: 20120806
  46. TAXOTERE [Suspect]
     Active Substance: DOCETAXEL
     Indication: BREAST CANCER STAGE I
     Dosage: UNK (145)
     Dates: start: 20120120
  47. HERCEPTIN [Concomitant]
     Active Substance: TRASTUZUMAB
     Dosage: UNK (550)
     Dates: start: 20120120
  48. HERCEPTIN [Concomitant]
     Active Substance: TRASTUZUMAB
     Dosage: 485 MG
     Dates: start: 20121119
  49. TAMOXIFEN [Concomitant]
     Active Substance: TAMOXIFEN
     Dosage: UNK (5 YEARS)
  50. ACCOLATE [Concomitant]
     Active Substance: ZAFIRLUKAST
     Indication: ASTHMA
     Dosage: 20 MG (1 IN AM AND PM)
  51. GLUCOPHAGE XR [Concomitant]
     Active Substance: METFORMIN HYDROCHLORIDE
     Indication: BLOOD GLUCOSE ABNORMAL
     Dosage: 500 MG (1 IN AM AND PM)
  52. NEURONTIN [Concomitant]
     Active Substance: GABAPENTIN
     Indication: NEUROPATHY PERIPHERAL
     Dosage: 300 MG (1 IN AM + 2 IN PM)
  53. VITAMIN A [Concomitant]
     Active Substance: VITAMIN A
     Dosage: 8000 IU (1 IN PM)
  54. TAXOTERE [Suspect]
     Active Substance: DOCETAXEL
     Dosage: UNK (145)
     Dates: start: 20120507
  55. METHOTREXATE. [Concomitant]
     Active Substance: METHOTREXATE
     Indication: CHEMOTHERAPY
     Dosage: UNK (SIX TIMES)
  56. HERCEPTIN [Concomitant]
     Active Substance: TRASTUZUMAB
     Dosage: 485 MG
     Dates: start: 20120917
  57. CARBOPLATIN. [Concomitant]
     Active Substance: CARBOPLATIN
     Dosage: UNK (520)
     Dates: start: 20120413
  58. ALLEGRA [Concomitant]
     Active Substance: FEXOFENADINE HYDROCHLORIDE
     Indication: MULTIPLE ALLERGIES
     Dosage: UNK, DAILY (1 IN AM)
  59. VITAMIN D [Concomitant]
     Active Substance: VITAMIN D NOS
     Dosage: 800 IU (1 IN AM + PM)

REACTIONS (2)
  - Lacrimation increased [Unknown]
  - Dacryostenosis acquired [Unknown]
